FAERS Safety Report 18792519 (Version 2)
Quarter: 2021Q1

REPORT INFORMATION
  Report Type: Report from Study
  Country: None (occurrence: US)
  Receive Date: 20210127
  Receipt Date: 20210204
  Transmission Date: 20210419
  Serious: Yes (Other)
  Sender: FDA-Public Use
  Company Number: US-BIOVITRUM-2020US5950

PATIENT
  Age: 43 Year
  Sex: Female

DRUGS (2)
  1. KINERET [Suspect]
     Active Substance: ANAKINRA
     Indication: STILL^S DISEASE
  2. KINERET [Suspect]
     Active Substance: ANAKINRA
     Indication: RHEUMATOID ARTHRITIS
     Route: 058
     Dates: start: 20190420

REACTIONS (9)
  - Degenerative bone disease [Unknown]
  - Off label use [Unknown]
  - Soft tissue swelling [Unknown]
  - Restless legs syndrome [Unknown]
  - Product dose omission issue [Unknown]
  - Muscle spasms [Unknown]
  - Aspartate aminotransferase increased [Unknown]
  - COVID-19 [Unknown]
  - Alanine aminotransferase increased [Unknown]

NARRATIVE: CASE EVENT DATE: 20190420
